FAERS Safety Report 12532264 (Version 2)
Quarter: 2016Q3

REPORT INFORMATION
  Report Type: Spontaneous
  Country: US (occurrence: US)
  Receive Date: 20160706
  Receipt Date: 20160908
  Transmission Date: 20161109
  Serious: Yes (Other)
  Sender: FDA-Public Use
  Company Number: US-INCYTE CORPORATION-2016IN003967

PATIENT
  Age: 77 Year
  Sex: Female

DRUGS (1)
  1. JAKAFI [Suspect]
     Active Substance: RUXOLITINIB
     Indication: POLYCYTHAEMIA VERA
     Dosage: 5 MG, QD (M,W,F) AND 5 MG BID ON REMAINING DAYS
     Route: 048
     Dates: start: 20160311

REACTIONS (3)
  - Transient ischaemic attack [Unknown]
  - Peripheral swelling [Unknown]
  - Muscular weakness [Unknown]

NARRATIVE: CASE EVENT DATE: 20160628
